FAERS Safety Report 19892709 (Version 3)
Quarter: 2021Q4

REPORT INFORMATION
  Report Type: Report from Study
  Country: US (occurrence: US)
  Receive Date: 20210929
  Receipt Date: 20211108
  Transmission Date: 20220303
  Serious: Yes (Hospitalization)
  Sender: FDA-Public Use
  Company Number: US-UCBSA-2021044991

PATIENT
  Sex: Female

DRUGS (4)
  1. LACOSAMIDE [Interacting]
     Active Substance: LACOSAMIDE
     Indication: Trigeminal neuralgia
     Dosage: 200MG .5 TABLET , 3X/DAY (TID)
  2. LACOSAMIDE [Interacting]
     Active Substance: LACOSAMIDE
     Indication: Off label use
  3. CARBAMAZEPINE [Interacting]
     Active Substance: CARBAMAZEPINE
     Indication: Product used for unknown indication
     Dosage: UNK
  4. GABAPENTIN [Concomitant]
     Active Substance: GABAPENTIN
     Indication: Product used for unknown indication

REACTIONS (4)
  - COVID-19 [Not Recovered/Not Resolved]
  - Off label use [Unknown]
  - Wrong technique in product usage process [Unknown]
  - Drug interaction [Unknown]
